FAERS Safety Report 19447925 (Version 1)
Quarter: 2021Q2

REPORT INFORMATION
  Report Type: Spontaneous
  Country: US (occurrence: US)
  Receive Date: 20210622
  Receipt Date: 20210622
  Transmission Date: 20210717
  Serious: Yes (Death)
  Sender: FDA-Public Use
  Company Number: None

PATIENT
  Age: 90 Year
  Sex: Female

DRUGS (19)
  1. SMZ?TMP DS [Concomitant]
     Active Substance: SULFAMETHOXAZOLE\TRIMETHOPRIM
  2. ELIQUIS [Concomitant]
     Active Substance: APIXABAN
  3. DILTIAZEM ER [Concomitant]
     Active Substance: DILTIAZEM
  4. MORPHINE SUL [Concomitant]
     Active Substance: MORPHINE SULFATE
  5. LACTULOSE. [Concomitant]
     Active Substance: LACTULOSE
  6. CEFDINIR. [Concomitant]
     Active Substance: CEFDINIR
  7. PAIN RELIEVR [Concomitant]
  8. DOFETILIDE. [Suspect]
     Active Substance: DOFETILIDE
     Indication: PRODUCT USED FOR UNKNOWN INDICATION
     Route: 048
     Dates: start: 20180215
  9. LORAZEPAM. [Concomitant]
     Active Substance: LORAZEPAM
  10. STIMULANT [Concomitant]
     Active Substance: UNSPECIFIED INGREDIENT
  11. LIDOCAINE. [Concomitant]
     Active Substance: LIDOCAINE
  12. HYDROCO/APAP [Concomitant]
     Active Substance: ACETAMINOPHEN\HYDROCODONE
  13. BUDES/FORMOT [Concomitant]
  14. ONDANSETRON [Concomitant]
     Active Substance: ONDANSETRON
  15. ALBUTEROL. [Concomitant]
     Active Substance: ALBUTEROL
  16. SENOKOT [Concomitant]
     Active Substance: SENNOSIDES
  17. PREDNISONE. [Concomitant]
     Active Substance: PREDNISONE
  18. SPIRONOLACT [Concomitant]
     Active Substance: SPIRONOLACTONE
  19. MORPHINE SUL [Concomitant]
     Active Substance: MORPHINE SULFATE

REACTIONS (1)
  - Death [None]
